FAERS Safety Report 6683189-3 (Version None)
Quarter: 2010Q2

REPORT INFORMATION
  Report Type: 
  Country: None (occurrence: None)
  Receive Date: 20100415
  Receipt Date: 20100121
  Transmission Date: 20101027
  Serious: No
  Sender: FDA-Public Use
  Company Number: US-ALLERGAN-0911176US

PATIENT
  Age: 38 Year
  Sex: Female

DRUGS (1)
  1. LATISSE [Suspect]
     Indication: GROWTH OF EYELASHES
     Dosage: 1 GTT, QPM
     Route: 061
     Dates: start: 20090401

REACTIONS (3)
  - ERYTHEMA [None]
  - MADAROSIS [None]
  - SKIN IRRITATION [None]
